FAERS Safety Report 21885568 (Version 1)
Quarter: 2023Q1

REPORT INFORMATION
  Report Type: Spontaneous
  Country: US (occurrence: None)
  Receive Date: 20230117
  Receipt Date: 20230117
  Transmission Date: 20230418
  Serious: Yes (Other)
  Sender: FDA-Public Use
  Company Number: None

PATIENT
  Age: 35 Year
  Sex: Female

DRUGS (1)
  1. NICOTINAMIDE-ADENINE DINUCLEOTIDE PHOSPHATE, REDUCED [Suspect]
     Active Substance: NICOTINAMIDE-ADENINE DINUCLEOTIDE PHOSPHATE, REDUCED

REACTIONS (3)
  - Abdominal pain [None]
  - Muscle spasms [None]
  - Hyperaesthesia [None]

NARRATIVE: CASE EVENT DATE: 20230113
